FAERS Safety Report 5041716-6 (Version None)
Quarter: 2006Q2

REPORT INFORMATION
  Report Type: 
  Country: None (occurrence: None)
  Receive Date: 20060630
  Receipt Date: 20060621
  Transmission Date: 20061013
  Serious: Yes (Other)
  Sender: FDA-Public Use
  Company Number: 2006079442

PATIENT
  Age: 14 Year
  Sex: Female

DRUGS (3)
  1. GEODON [Suspect]
     Indication: HALLUCINATION
     Dosage: 160 MG (80 MG, 2 IN 1 D)
     Dates: start: 20060509
  2. RISPERDAL [Concomitant]
  3. ABILIFY [Concomitant]

REACTIONS (1)
  - GALACTORRHOEA [None]
